FAERS Safety Report 9363332 (Version 1)
Quarter: 2013Q2

REPORT INFORMATION
  Report Type: Spontaneous
  Country: US (occurrence: None)
  Receive Date: 20130621
  Receipt Date: 20130621
  Transmission Date: 20140414
  Serious: No
  Sender: FDA-Public Use
  Company Number: None

PATIENT
  Age: 66 Year
  Sex: Male

DRUGS (3)
  1. GLEEVEC [Suspect]
     Indication: NEOPLASM MALIGNANT
     Route: 048
     Dates: start: 20120622
  2. CYANOCOBALAMINE [Concomitant]
  3. CHOLESTYRAMINE [Concomitant]

REACTIONS (3)
  - Malabsorption [None]
  - Weight decreased [None]
  - Malnutrition [None]
